FAERS Safety Report 4388960-9 (Version None)
Quarter: 2004Q2

REPORT INFORMATION
  Report Type: 
  Country: None (occurrence: None)
  Receive Date: 20040624
  Receipt Date: 20040611
  Transmission Date: 20050107
  Serious: Yes (Other)
  Sender: FDA-Public Use
  Company Number: 2003-06064

PATIENT
  Age: 26 Year
  Sex: Male
  Weight: 102.0593 kg

DRUGS (11)
  1. VIREAD [Suspect]
     Indication: HIV INFECTION
     Dosage: 300 MG, ONCE A DAY, ORAL
     Route: 048
     Dates: start: 20030906, end: 20030908
  2. COMBIVIR [Suspect]
     Indication: HIV INFECTION
     Dosage: 450 MG, TWICE A DAY, ORAL
     Route: 048
     Dates: start: 20030831, end: 20030908
  3. WELLBUTRIN [Suspect]
     Dates: start: 20030906
  4. AMBIEN [Concomitant]
  5. EFFEXOR [Concomitant]
  6. ASACOL [Concomitant]
  7. CLINDAGEL (CLINDAMYCIN) [Concomitant]
  8. ELIDEL (PIMECROLIMUS) [Concomitant]
  9. CLOTRIM/BETA [Concomitant]
  10. PROTOPIC [Concomitant]
  11. FLONASE [Concomitant]

REACTIONS (3)
  - CHOLELITHIASIS [None]
  - HEPATITIS [None]
  - PANCREATITIS [None]
